FAERS Safety Report 25769326 (Version 3)
Quarter: 2025Q4

REPORT INFORMATION
  Report Type: Spontaneous
  Country: JP (occurrence: JP)
  Receive Date: 20250906
  Receipt Date: 20251222
  Transmission Date: 20260117
  Serious: Yes (Other)
  Sender: AMGEN
  Company Number: JP-AMGEN-JPNSP2025174542

PATIENT
  Age: 75 Year
  Sex: Female

DRUGS (7)
  1. TEPEZZA [Suspect]
     Active Substance: TEPROTUMUMAB-TRBW
     Indication: Endocrine ophthalmopathy
     Dosage: 10.1 MILLILITER, Q3WK, (INTRAVENOUS DRIP INFUSION)
     Route: 040
  2. TEPEZZA [Suspect]
     Active Substance: TEPROTUMUMAB-TRBW
     Dosage: 20.2 MILLILITER, Q3WK, (SECOND ADMINISTRATION)
     Route: 040
  3. TEPEZZA [Suspect]
     Active Substance: TEPROTUMUMAB-TRBW
     Dosage: 20.2 MILLILITER, Q3WK, (THIRD ADMINISTRATION)
     Route: 040
  4. TEPEZZA [Suspect]
     Active Substance: TEPROTUMUMAB-TRBW
     Dosage: 20.2 MILLILITER, Q3WK, (FOURTH DOSE)
     Route: 040
  5. TEPEZZA [Suspect]
     Active Substance: TEPROTUMUMAB-TRBW
     Dosage: 20.2 MILLILITER, Q3WK, (SEVENTH ADMINISTRATION)
     Route: 040
  6. CARBIMAZOLE [Concomitant]
     Active Substance: CARBIMAZOLE
     Dosage: UNK
     Route: 065
  7. LEVOTHYROXINE [Concomitant]
     Active Substance: LEVOTHYROXINE

REACTIONS (2)
  - Meniere^s disease [Recovered/Resolved]
  - Incorrect dose administered [Unknown]
